FAERS Safety Report 5930553-3 (Version None)
Quarter: 2008Q4

REPORT INFORMATION
  Report Type: 
  Country: None (occurrence: None)
  Receive Date: 20081027
  Receipt Date: 20080926
  Transmission Date: 20090506
  Serious: No
  Sender: FDA-Public Use
  Company Number: US-BAYER-200829586NA

PATIENT
  Age: 77 Year
  Sex: Male

DRUGS (7)
  1. LEVITRA [Suspect]
     Indication: ERECTILE DYSFUNCTION
     Dosage: UNIT DOSE: 20 MG
     Dates: start: 20080401
  2. LEVITRA [Suspect]
     Dosage: UNIT DOSE: 10 MG
     Dates: start: 20080401
  3. METOPROLOL TARTRATE [Concomitant]
     Indication: BLOOD PRESSURE MANAGEMENT
     Dosage: TOTAL DAILY DOSE: 100 MG
     Route: 048
     Dates: start: 20030101
  4. OMEPRAZOLE [Concomitant]
     Dosage: TOTAL DAILY DOSE: 20 MG
     Route: 048
     Dates: start: 20020101
  5. VYTORIN [Concomitant]
     Route: 048
     Dates: start: 20020101
  6. METFORMIN HYDROCHLORIDE [Concomitant]
     Dosage: TOTAL DAILY DOSE: 500 MG
     Route: 048
     Dates: start: 20020101
  7. ASPIRIN [Concomitant]
     Indication: ANTICOAGULANT THERAPY
     Dosage: TOTAL DAILY DOSE: 81 MG
     Route: 048

REACTIONS (2)
  - ERECTILE DYSFUNCTION [None]
  - FLUSHING [None]
